FAERS Safety Report 12851921 (Version 1)
Quarter: 2016Q4

REPORT INFORMATION
  Report Type: Spontaneous
  Country: US (occurrence: US)
  Receive Date: 20161014
  Receipt Date: 20161014
  Transmission Date: 20170207
  Serious: Yes (Hospitalization, Other)
  Sender: FDA-Public Use
  Company Number: None

PATIENT
  Age: 27 Year
  Sex: Female
  Weight: 56.7 kg

DRUGS (1)
  1. NYSTATIN. [Suspect]
     Active Substance: NYSTATIN
     Dates: start: 20160701, end: 20160705

REACTIONS (4)
  - Abscess [None]
  - Burning sensation [None]
  - Dermatitis [None]
  - Cellulitis [None]

NARRATIVE: CASE EVENT DATE: 20160705
